FAERS Safety Report 6911001-3 (Version None)
Quarter: 2010Q3

REPORT INFORMATION
  Report Type: 
  Country: None (occurrence: None)
  Receive Date: 20100806
  Receipt Date: 20100804
  Transmission Date: 20110219
  Serious: Yes (Congenital Anomaly)
  Sender: FDA-Public Use
  Company Number: A0872410A

PATIENT
  Sex: Male

DRUGS (6)
  1. COMBIVIR [Suspect]
     Indication: HIV INFECTION
     Dates: start: 20031112, end: 20040214
  2. EPIVIR [Suspect]
     Indication: HIV INFECTION
     Dates: start: 20040122, end: 20040123
  3. VIRAMUNE [Suspect]
     Indication: HIV INFECTION
     Dates: start: 20031112, end: 20040212
  4. KALETRA [Suspect]
     Indication: HIV INFECTION
     Dates: start: 20040122, end: 20040123
  5. VIDEX [Suspect]
     Indication: HIV INFECTION
     Dates: start: 20040122, end: 20040123
  6. METRONIDAZOLE [Concomitant]

REACTIONS (3)
  - APLASIA CUTIS CONGENITA [None]
  - DRUG EXPOSURE DURING PREGNANCY [None]
  - EXOMPHALOS [None]
